FAERS Safety Report 7615693-5 (Version None)
Quarter: 2011Q3

REPORT INFORMATION
  Report Type: 
  Country: None (occurrence: None)
  Receive Date: 20110711
  Receipt Date: 20110628
  Transmission Date: 20111222
  Serious: Yes (Hospitalization)
  Sender: FDA-Public Use
  Company Number: UTC-008244

PATIENT
  Age: 64 Year
  Sex: Female
  Weight: 59 kg

DRUGS (3)
  1. REMODULIN [Suspect]
     Indication: COR PULMONALE CHRONIC
     Dosage: 146.8 UG/KG (0.102 UG/KG, 1 IN 1 MIN), SUBCUTANEOUS
     Route: 058
     Dates: start: 20090901
  2. COUMADIN [Concomitant]
  3. DIURETICS (DIURETICS) [Concomitant]

REACTIONS (6)
  - FACIAL PAIN [None]
  - HYPERTENSION [None]
  - NAUSEA [None]
  - NEEDLE ISSUE [None]
  - INJECTION SITE INFECTION [None]
  - MALAISE [None]
